FAERS Safety Report 7710156-0 (Version None)
Quarter: 2011Q3

REPORT INFORMATION
  Report Type: 
  Country: None (occurrence: None)
  Receive Date: 20110825
  Receipt Date: 20110812
  Transmission Date: 20111222
  Serious: Yes (Other)
  Sender: FDA-Public Use
  Company Number: BR-GENENTECH-323120

PATIENT
  Sex: Female
  Weight: 54 kg

DRUGS (9)
  1. MABTHERA [Suspect]
     Indication: RHEUMATOID ARTHRITIS
     Dosage: UNK
     Route: 042
     Dates: start: 20110726
  2. INSULIN [Concomitant]
     Indication: PRODUCT USED FOR UNKNOWN INDICATION
     Dosage: 60 IU, UNK
  3. LANTUS [Concomitant]
     Indication: PRODUCT USED FOR UNKNOWN INDICATION
     Dosage: UNK
  4. PREDNISONE [Concomitant]
     Indication: PRODUCT USED FOR UNKNOWN INDICATION
     Dosage: 5 MG, UNK
  5. NOVORAPID [Concomitant]
     Indication: PRODUCT USED FOR UNKNOWN INDICATION
     Dosage: UNK
  6. FOLIC ACID [Concomitant]
     Indication: PRODUCT USED FOR UNKNOWN INDICATION
     Dosage: UNK
  7. ALENIA [Concomitant]
     Indication: ASTHMA
     Dosage: UNK
  8. CORTICOSTEROIDS [Concomitant]
     Indication: PREMEDICATION
     Dosage: UNK
  9. ELANI [Concomitant]
     Indication: CONTRACEPTION
     Dosage: UNK

REACTIONS (12)
  - WHITE BLOOD CELL COUNT DECREASED [None]
  - PYREXIA [None]
  - BLOOD GLUCOSE INCREASED [None]
  - COUGH [None]
  - SYNCOPE [None]
  - ASTHMATIC CRISIS [None]
  - VOMITING [None]
  - BRONCHITIS [None]
  - MALAISE [None]
  - HEADACHE [None]
  - NAUSEA [None]
  - ASTHENIA [None]
